FAERS Safety Report 6058074-0 (Version None)
Quarter: 2009Q1

REPORT INFORMATION
  Report Type: 
  Country: None (occurrence: None)
  Receive Date: 20090128
  Receipt Date: 20080718
  Transmission Date: 20090719
  Serious: Yes (Other)
  Sender: FDA-Public Use
  Company Number: AE09-01

PATIENT
  Sex: Male

DRUGS (2)
  1. PREPARATION CLEANSING KIT ORAL SALINE LAXATIVE LONGS BRAND LOT PK70010 [Suspect]
     Indication: COLONOSCOPY
     Dosage: 45ML/ONCE A DAY/ORAL
     Route: 048
     Dates: start: 20070612
  2. PREPARATION CLEANSING KIT ORAL SALINE LAXATIVE LONGS BRAND LOT PK70010 [Suspect]
     Dosage: 30ML/ONCE AFTERDOSE/ORAL
     Route: 048
     Dates: start: 20070612

REACTIONS (1)
  - REACTION TO DRUG EXCIPIENTS [None]
